FAERS Safety Report 7902098-2 (Version None)
Quarter: 2011Q4

REPORT INFORMATION
  Report Type: 
  Country: None (occurrence: None)
  Receive Date: 20111108
  Receipt Date: 20111028
  Transmission Date: 20120403
  Serious: Yes (Hospitalization, Other)
  Sender: FDA-Public Use
  Company Number: US-BAYER-201036355NA

PATIENT
  Age: 22 Year
  Sex: Female
  Weight: 63.492 kg

DRUGS (34)
  1. YAZ [Suspect]
     Indication: CONTRACEPTION
     Dosage: UNK
     Route: 048
     Dates: start: 20010101, end: 20090801
  2. PROPRANOLOL RETARD [Concomitant]
     Indication: CARDIAC DISORDER
  3. TPN [Concomitant]
  4. DILAUDID [Concomitant]
     Route: 042
  5. TIGAN [Concomitant]
  6. ATARAX [Concomitant]
  7. PHENERGAN [Concomitant]
  8. IV FLUIDS [Concomitant]
  9. LEVBID [Concomitant]
  10. DOMPERIDONE [Concomitant]
  11. LEVSIN [Concomitant]
  12. PROMETHAZINE [Concomitant]
  13. LYRICA [Concomitant]
  14. PROAIR HFA [Concomitant]
     Indication: ASTHMA
  15. REGLAN [Concomitant]
  16. ETHIN ESTRA/DROSPIREN [Concomitant]
     Dosage: 0.03 MG, QD
  17. DROSPIRENONE AND ETHINYL ESTRADIOL [Suspect]
     Indication: PRODUCT USED FOR UNKNOWN INDICATION
     Route: 048
     Dates: start: 20010101
  18. ANTIBIOTICS [Concomitant]
  19. FAT EMULSIONS [Concomitant]
  20. VICODIN [Concomitant]
  21. YASMIN [Suspect]
     Indication: CONTRACEPTION
     Dosage: UNK
     Route: 048
     Dates: start: 20010101, end: 20090801
  22. THORAZINE [Concomitant]
  23. BENTYL [Concomitant]
  24. CYMBALTA [Concomitant]
  25. ZOFRAN [Concomitant]
     Route: 042
  26. KEFLEX [Concomitant]
  27. PRILOSEC [Concomitant]
  28. AMITRIPTYLINE HCL [Concomitant]
  29. ALBUTEROL [Concomitant]
     Indication: ASTHMA
  30. NEURONTIN [Concomitant]
  31. IMODIUM [Concomitant]
  32. METOPROLOL RETARD [Concomitant]
     Indication: CARDIAC DISORDER
  33. ATIVAN [Concomitant]
  34. MORPHINE [Concomitant]

REACTIONS (3)
  - GALLBLADDER DISORDER [None]
  - CHOLECYSTITIS CHRONIC [None]
  - THROMBOSIS [None]
